FAERS Safety Report 7630277-0 (Version None)
Quarter: 2011Q3

REPORT INFORMATION
  Report Type: 
  Country: None (occurrence: None)
  Receive Date: 20110722
  Receipt Date: 20110712
  Transmission Date: 20111222
  Serious: Yes (Hospitalization)
  Sender: FDA-Public Use
  Company Number: PHHY2011IT63372

PATIENT
  Age: 71 Year
  Sex: Female

DRUGS (4)
  1. TAXOL [Suspect]
  2. CISPLATIN [Suspect]
     Route: 065
  3. TOPOTECAN [Suspect]
     Dosage: UNK
     Dates: start: 20070101
  4. CARBOPLATIN [Suspect]
     Dosage: UNK
     Dates: start: 20040101

REACTIONS (8)
  - TACHYCARDIA [None]
  - CHEST PAIN [None]
  - COLD SWEAT [None]
  - PRINZMETAL ANGINA [None]
  - NEOPLASM MALIGNANT [None]
  - KOUNIS SYNDROME [None]
  - PERICARDIAL EFFUSION [None]
  - HYPOTENSION [None]
